FAERS Safety Report 14131057 (Version 2)
Quarter: 2018Q1

REPORT INFORMATION
  Report Type: Spontaneous
  Country: AT (occurrence: AT)
  Receive Date: 20171026
  Receipt Date: 20180126
  Transmission Date: 20180508
  Serious: Yes (Hospitalization)
  Sender: FDA-Public Use
  Company Number: AT-TEVA-817218ISR

PATIENT
  Age: 76 Year
  Sex: Female
  Weight: 53.5 kg

DRUGS (2)
  1. AMOXICILLIN RATIOPHARM 1000MG - FILMTABLETTEN [Suspect]
     Active Substance: AMOXICILLIN
     Indication: LYME DISEASE
     Dosage: 1000 MILLIGRAM DAILY;
     Route: 048
     Dates: start: 20170615, end: 201706
  2. AMOXICILLIN RATIOPHARM 1000MG - FILMTABLETTEN [Suspect]
     Active Substance: AMOXICILLIN
     Dosage: 2000 MILLIGRAM DAILY;
     Route: 048
     Dates: start: 20170612, end: 20170614

REACTIONS (6)
  - Actinic keratosis [Not Recovered/Not Resolved]
  - Alopecia [Not Recovered/Not Resolved]
  - Rash erythematous [Not Recovered/Not Resolved]
  - Pruritus allergic [Not Recovered/Not Resolved]
  - Pruritus [Not Recovered/Not Resolved]
  - Quality of life decreased [Unknown]

NARRATIVE: CASE EVENT DATE: 20170613
